FAERS Safety Report 7324401-7 (Version None)
Quarter: 2011Q1

REPORT INFORMATION
  Report Type: 
  Country: None (occurrence: None)
  Receive Date: 20110301
  Receipt Date: 20110301
  Transmission Date: 20110831
  Serious: Yes (Life-Threatening, Hospitalization, Other)
  Sender: FDA-Public Use
  Company Number: GB-CEPHALON-2011000368

PATIENT
  Sex: Female

DRUGS (7)
  1. PROCHLORPERAZINE [Concomitant]
  2. PROVIGIL [Suspect]
     Indication: HYPERSOMNIA
     Route: 048
     Dates: start: 20010101
  3. OMEPRAZOLE [Concomitant]
  4. FUROSEMIDE [Concomitant]
  5. LETROZOLE [Concomitant]
  6. BISOPROLOL FUMARATE [Concomitant]
  7. DIGOXIN [Concomitant]

REACTIONS (3)
  - CARDIOMYOPATHY [None]
  - ATRIAL FIBRILLATION [None]
  - PULMONARY THROMBOSIS [None]
